FAERS Safety Report 13161753 (Version 3)
Quarter: 2017Q1

REPORT INFORMATION
  Report Type: Report from Study
  Country: US (occurrence: US)
  Receive Date: 20170130
  Receipt Date: 20170222
  Transmission Date: 20170428
  Serious: Yes (Hospitalization)
  Sender: FDA-Public Use
  Company Number: US-ROCHE-1886024

PATIENT
  Age: 17 Year
  Sex: Male
  Weight: 40.3 kg

DRUGS (10)
  1. NUTROPIN [Suspect]
     Active Substance: SOMATROPIN
     Indication: HYPOPITUITARISM
     Dosage: 7 X WEEK
     Route: 058
  2. LEVOTHYROXINE. [Concomitant]
     Active Substance: LEVOTHYROXINE
     Route: 048
  3. TESTOSTERONE. [Concomitant]
     Active Substance: TESTOSTERONE
     Route: 065
  4. HYDROCORTISONE. [Concomitant]
     Active Substance: HYDROCORTISONE
     Route: 048
  5. NUTROPIN [Suspect]
     Active Substance: SOMATROPIN
     Route: 058
  6. INCRELEX [Suspect]
     Active Substance: MECASERMIN
     Indication: PRODUCT USED FOR UNKNOWN INDICATION
     Dosage: 10 MG/ML
     Route: 058
  7. INSULIN [Concomitant]
     Active Substance: INSULIN NOS
     Dosage: PEN NEEDLE(3/16^), ULTRAFINE SYRINGE, 31G * 5 MM.
     Route: 065
  8. HYDROCORTISONE. [Concomitant]
     Active Substance: HYDROCORTISONE
     Dosage: AT LUNCH
     Route: 048
  9. HYDROCORTISONE. [Concomitant]
     Active Substance: HYDROCORTISONE
     Route: 048
  10. DEXTROSE. [Concomitant]
     Active Substance: DEXTROSE
     Dosage: 5%-0.45%
     Route: 065

REACTIONS (14)
  - Dehydration [Unknown]
  - Temperature intolerance [Unknown]
  - Vomiting [Unknown]
  - Decreased appetite [Unknown]
  - Nausea [Unknown]
  - Epistaxis [Unknown]
  - Hypoacusis [Unknown]
  - Hypoaesthesia [Unknown]
  - Social avoidant behaviour [Unknown]
  - Depressed mood [Unknown]
  - Abdominal pain [Unknown]
  - Hypoglycaemia [Unknown]
  - Malaise [Unknown]
  - Fatigue [Unknown]

NARRATIVE: CASE EVENT DATE: 20161201
